FAERS Safety Report 5165564-1 (Version None)
Quarter: 2006Q4

REPORT INFORMATION
  Report Type: 
  Country: None (occurrence: None)
  Receive Date: 20061124
  Receipt Date: 20061109
  Transmission Date: 20070319
  Serious: Yes (Other)
  Sender: FDA-Public Use
  Company Number: 2006139010

PATIENT
  Age: 65 Year
  Sex: Male

DRUGS (1)
  1. GENOTROPIN [Suspect]
     Dosage: 0.2 MG (DAILY)
     Dates: start: 20030901

REACTIONS (1)
  - METASTASES TO LIVER [None]
